FAERS Safety Report 11857982 (Version 1)
Quarter: 2015Q4

REPORT INFORMATION
  Report Type: Spontaneous
  Country: US (occurrence: None)
  Receive Date: 20151221
  Receipt Date: 20151221
  Transmission Date: 20160305
  Serious: Yes (Hospitalization)
  Sender: FDA-Public Use
  Company Number: None

PATIENT
  Age: 71 Year
  Sex: Male

DRUGS (1)
  1. WARFARIN [Suspect]
     Active Substance: WARFARIN
     Indication: ATRIAL FIBRILLATION
     Route: 048
     Dates: start: 20130501, end: 20151202

REACTIONS (10)
  - Duodenal ulcer [None]
  - Acute kidney injury [None]
  - Hypotension [None]
  - Cardiac arrest [None]
  - Dyspnoea [None]
  - International normalised ratio increased [None]
  - Troponin increased [None]
  - Cardiogenic shock [None]
  - Respiratory failure [None]
  - Hyperglycaemia [None]

NARRATIVE: CASE EVENT DATE: 20151204
